FAERS Safety Report 9105215 (Version 1)
Quarter: 2013Q1

REPORT INFORMATION
  Report Type: Spontaneous
  Country: FR (occurrence: FR)
  Receive Date: 20130220
  Receipt Date: 20130220
  Transmission Date: 20140127
  Serious: Yes (Hospitalization)
  Sender: FDA-Public Use
  Company Number: FR-BRISTOL-MYERS SQUIBB COMPANY-17379272

PATIENT
  Age: 85 Year
  Sex: Female

DRUGS (7)
  1. COUMADIN TABS 2 MG [Suspect]
     Indication: ISCHAEMIC CARDIOMYOPATHY
     Route: 048
  2. DOLIPRANE [Suspect]
     Route: 048
  3. FRAXIPARINE [Suspect]
     Route: 058
  4. DICLOFENAC [Suspect]
     Route: 048
     Dates: end: 20121216
  5. LASILIX RETARD [Concomitant]
  6. TRIATEC [Concomitant]
  7. INSULIN [Concomitant]

REACTIONS (4)
  - Gastrointestinal haemorrhage [Recovered/Resolved]
  - Normochromic normocytic anaemia [Recovered/Resolved]
  - Gastroduodenal ulcer [Recovered/Resolved]
  - Orthostatic hypotension [Recovered/Resolved]
